FAERS Safety Report 10108983 (Version 1)
Quarter: 2014Q2

REPORT INFORMATION
  Report Type: Spontaneous
  Country: US (occurrence: US)
  Receive Date: 20140425
  Receipt Date: 20140425
  Transmission Date: 20141212
  Serious: Yes (Hospitalization)
  Sender: FDA-Public Use
  Company Number: US-BAYER-2014-059285

PATIENT
  Age: 44 Year
  Sex: Female
  Weight: 50.79 kg

DRUGS (13)
  1. YASMIN [Suspect]
  2. YAZ [Suspect]
  3. XANAX [Concomitant]
     Indication: ANXIETY
     Dosage: 0.5 MG, UNK
  4. KEFLEX [Concomitant]
     Indication: ARTHROPOD BITE
  5. TEQUIN [Concomitant]
     Indication: CELLULITIS
     Dosage: 400 MG, UNK
     Dates: start: 20050908
  6. PERCOCET [Concomitant]
     Dosage: 5/325 MG
     Dates: start: 20050908
  7. POTASSIUM CHLORIDE [Concomitant]
     Dosage: 20 MEQ, UNK
     Dates: start: 20050908
  8. TYLOX [Concomitant]
     Dosage: UNK
     Dates: start: 20050908
  9. LEVAQUIN [Concomitant]
     Dosage: 500 MG, UNK
     Route: 042
     Dates: start: 20050908
  10. ATARAX [Concomitant]
     Indication: PRURITUS
     Dosage: 25 MG, UNK
     Dates: start: 20050908
  11. CLEOCIN [Concomitant]
     Dosage: 600 MG, UNK
     Dates: start: 20050909
  12. VANCOMYCIN [Concomitant]
     Indication: CELLULITIS
     Dosage: 1250 MG, UNK
     Route: 042
  13. ROCEPHIN [Concomitant]
     Indication: CELLULITIS
     Dosage: 1 G, UNK
     Route: 042

REACTIONS (1)
  - Pulmonary embolism [None]
